FAERS Safety Report 7819111-3 (Version None)
Quarter: 2011Q4

REPORT INFORMATION
  Report Type: 
  Country: None (occurrence: None)
  Receive Date: 20111018
  Receipt Date: 20111010
  Transmission Date: 20120403
  Serious: Yes (Hospitalization, Other)
  Sender: FDA-Public Use
  Company Number: IE-US-EMD SERONO, INC.-7059604

PATIENT
  Sex: Female

DRUGS (3)
  1. ZYDOL (TRAMADOL) [Concomitant]
     Indication: PAIN
  2. REBIF [Suspect]
     Indication: RELAPSING-REMITTING MULTIPLE SCLEROSIS
     Route: 058
     Dates: start: 19980822
  3. NEURONTIN [Concomitant]
     Indication: PAIN

REACTIONS (2)
  - CONVULSION [None]
  - MALAISE [None]
